FAERS Safety Report 5704452-6 (Version None)
Quarter: 2008Q2

REPORT INFORMATION
  Report Type: 
  Country: None (occurrence: None)
  Receive Date: 20080411
  Receipt Date: 20080411
  Transmission Date: 20081010
  Serious: Yes (Disabling, Other)
  Sender: FDA-Public Use
  Company Number: None

PATIENT
  Age: 3 Year
  Sex: Male
  Weight: 20.4119 kg

DRUGS (2)
  1. SINGULAIR [Suspect]
     Indication: HYPERSENSITIVITY
     Dosage: 4MG ONCE A DAY PO
     Route: 048
     Dates: start: 20020601, end: 20080401
  2. SINGULAIR [Suspect]
     Indication: ASTHMA
     Dosage: 5MG ONCE A DAY PO
     Route: 048

REACTIONS (1)
  - ABNORMAL BEHAVIOUR [None]
